FAERS Safety Report 8901635 (Version 1)
Quarter: 2012Q4

REPORT INFORMATION
  Report Type: Spontaneous
  Country: US (occurrence: None)
  Receive Date: 20121108
  Receipt Date: 20121108
  Transmission Date: 20130627
  Serious: Yes (Death)
  Sender: FDA-Public Use
  Company Number: None

PATIENT
  Age: 84 Year
  Sex: Female
  Weight: 91.4 kg

DRUGS (1)
  1. AMIODARON [Suspect]
     Indication: ATRIAL FIBRILLATION
     Dosage: 200mg Daily po
     Route: 048
     Dates: start: 20120801, end: 20120908

REACTIONS (5)
  - Pneumonia [None]
  - Cardiac failure congestive [None]
  - Condition aggravated [None]
  - Toxicity to various agents [None]
  - Refusal of treatment by patient [None]
